FAERS Safety Report 5062715-4 (Version None)
Quarter: 2006Q3

REPORT INFORMATION
  Report Type: 
  Country: None (occurrence: None)
  Receive Date: 20060725
  Receipt Date: 20060725
  Transmission Date: 20061208
  Serious: Yes (Life-Threatening, Hospitalization)
  Sender: FDA-Public Use
  Company Number: None

PATIENT
  Sex: Female

DRUGS (6)
  1. HEPARIN [Suspect]
     Indication: AORTIC VALVE STENOSIS
     Dosage: 8000 UNITS   ONE TIME   IV
     Route: 042
     Dates: start: 20060627, end: 20060627
  2. HEPARIN [Suspect]
     Indication: HEART VALVE REPLACEMENT
     Dosage: 8000 UNITS   ONE TIME   IV
     Route: 042
     Dates: start: 20060627, end: 20060627
  3. HEPARIN [Suspect]
     Indication: MITRAL VALVE STENOSIS
     Dosage: 8000 UNITS   ONE TIME   IV
     Route: 042
     Dates: start: 20060627, end: 20060627
  4. HEPARIN [Suspect]
     Indication: AORTIC VALVE STENOSIS
     Dosage: 30000 UNITS   ONE TIME   IV
     Route: 042
     Dates: start: 20060627, end: 20060627
  5. HEPARIN [Suspect]
     Indication: HEART VALVE REPLACEMENT
     Dosage: 30000 UNITS   ONE TIME   IV
     Route: 042
     Dates: start: 20060627, end: 20060627
  6. HEPARIN [Suspect]
     Indication: MITRAL VALVE STENOSIS
     Dosage: 30000 UNITS   ONE TIME   IV
     Route: 042
     Dates: start: 20060627, end: 20060627

REACTIONS (5)
  - ANTIBODY TEST POSITIVE [None]
  - DEEP VEIN THROMBOSIS [None]
  - HEPARIN-INDUCED THROMBOCYTOPENIA TEST [None]
  - POST PROCEDURAL COMPLICATION [None]
  - THROMBOCYTOPENIA [None]
